FAERS Safety Report 9448698 (Version 1)
Quarter: 2013Q3

REPORT INFORMATION
  Report Type: Spontaneous
  Country: US (occurrence: US)
  Receive Date: 20130808
  Receipt Date: 20130808
  Transmission Date: 20140515
  Serious: Yes (Hospitalization, Other)
  Sender: FDA-Public Use
  Company Number: US-PFIZER INC-2013226309

PATIENT
  Age: 23 Month
  Sex: Female

DRUGS (16)
  1. DILANTIN [Suspect]
     Indication: CONVULSION
     Dosage: 180 MG, UNK
     Route: 042
     Dates: start: 20100511
  2. DILANTIN [Suspect]
     Dosage: 22.5 MG, 2X/DAY
     Route: 042
     Dates: start: 20100512, end: 20100514
  3. DILANTIN-125 [Suspect]
     Indication: CONVULSION
     Dosage: 50 MG, 3X/DAY
     Route: 048
     Dates: start: 20100525, end: 20100601
  4. CLEOCIN [Concomitant]
     Dosage: 90 MG, UNK
     Route: 042
     Dates: start: 20100510, end: 20100519
  5. NEXIUM [Concomitant]
     Dosage: 20 MG, UNK
     Route: 042
     Dates: start: 20100510, end: 20100519
  6. TYLENOL [Concomitant]
     Dosage: UNK
     Dates: start: 20100512, end: 20100525
  7. LUMINAL [Concomitant]
     Dosage: 45 MG, 2X/DAY
     Route: 048
     Dates: start: 20100524
  8. PREVACID [Concomitant]
     Dosage: 18 MG, UNK
     Dates: start: 20100524
  9. ATIVAN [Concomitant]
     Dosage: 0.45 MG, EVERY 4 HRS
     Route: 048
     Dates: start: 20100524
  10. POLY-VISOL/IRON [Concomitant]
     Dosage: 0.5 ML, 1X/DAY
     Route: 048
     Dates: start: 20100524
  11. VIMPAT [Concomitant]
     Dosage: 12.5 MG, 2X/DAY
     Route: 048
     Dates: start: 20100524
  12. FELBATOL [Concomitant]
     Dosage: 360 MG, 3X/DAY
     Dates: start: 20100524
  13. FLONASE [Concomitant]
     Dosage: 50 UG, 1X/DAY
     Route: 045
     Dates: start: 20100524
  14. ROBINUL [Concomitant]
     Dosage: 0.5 MG, 4X/DAY
     Dates: start: 20100525
  15. VENTOLIN [Concomitant]
     Dosage: 5 MG, EVERY 4 HRS
     Dates: start: 20100525
  16. ALBUTEROL [Concomitant]
     Dosage: UNK
     Dates: start: 20100525

REACTIONS (2)
  - Stevens-Johnson syndrome [Unknown]
  - Toxic epidermal necrolysis [Unknown]
